FAERS Safety Report 8271322-1 (Version None)
Quarter: 2012Q2

REPORT INFORMATION
  Report Type: 
  Country: None (occurrence: None)
  Receive Date: 20120410
  Receipt Date: 20120404
  Transmission Date: 20120825
  Serious: Yes (Life-Threatening, Hospitalization)
  Sender: FDA-Public Use
  Company Number: US-ELI_LILLY_AND_COMPANY-US201109006352

PATIENT
  Sex: Female
  Weight: 63.5 kg

DRUGS (13)
  1. PEMETREXED [Suspect]
     Indication: NON-SMALL CELL LUNG CANCER
     Dosage: 500 MG/M2, DAY1 EVERY 21 DAYS
     Route: 042
     Dates: start: 20110801, end: 20110919
  2. CARBOPLATIN [Suspect]
     Indication: NON-SMALL CELL LUNG CANCER
     Dosage: 6 AUC, DAY 1 EVERY 21 DAYS
     Route: 042
     Dates: start: 20110801, end: 20110919
  3. XANAX [Concomitant]
     Indication: ANXIETY
     Dosage: UNK
  4. EMEND [Concomitant]
     Indication: PROPHYLAXIS
     Dosage: UNK
     Dates: start: 20110801
  5. BEVACIZUMAB [Suspect]
     Indication: NON-SMALL CELL LUNG CANCER
     Dosage: 15 MG/KG, DAY 1 EVERY 21 DAYS
     Route: 042
     Dates: start: 20110801, end: 20110919
  6. ASPIRIN [Concomitant]
     Indication: HYPERTENSION
     Dosage: UNK
     Dates: start: 20080121
  7. ZOLPIDEM [Concomitant]
     Indication: INSOMNIA
     Dosage: UNK
  8. FOLIC ACID [Concomitant]
     Indication: SUPPLEMENTATION THERAPY
     Dosage: UNK
     Dates: start: 20110621
  9. VITAMIN B-12 [Concomitant]
     Indication: SUPPLEMENTATION THERAPY
     Dosage: UNK
     Dates: start: 20110721
  10. HYZAAR [Concomitant]
     Indication: HYPERTENSION
     Dosage: UNK
     Dates: start: 20071221
  11. ALOXI [Concomitant]
     Indication: PROPHYLAXIS
     Dosage: UNK
     Dates: start: 20110801
  12. NORVASC [Concomitant]
     Indication: HYPERTENSION
     Dosage: UNK
     Dates: start: 20071221
  13. FAMOTIDINE [Concomitant]
     Indication: GASTROOESOPHAGEAL REFLUX DISEASE
     Dosage: UNK
     Dates: start: 20110614

REACTIONS (4)
  - HYPOPHOSPHATAEMIA [None]
  - FISTULA [None]
  - PNEUMONIA ASPIRATION [None]
  - HYPOKALAEMIA [None]
